FAERS Safety Report 9537699 (Version 3)
Quarter: 2014Q1

REPORT INFORMATION
  Report Type: Spontaneous
  Country: US (occurrence: US)
  Receive Date: 20130919
  Receipt Date: 20140218
  Transmission Date: 20141002
  Serious: Yes (Hospitalization)
  Sender: FDA-Public Use
  Company Number: US-B.I. PHARMACEUTICALS,INC./RIDGEFIELD-2013-BI-29095BP

PATIENT
  Age: 72 Year
  Sex: Male
  Weight: 129.27 kg

DRUGS (12)
  1. PRADAXA [Suspect]
     Indication: ANTICOAGULANT THERAPY
     Dosage: 300 MG
     Dates: start: 20111005
  2. PRADAXA [Suspect]
     Indication: ATRIAL FIBRILLATION
     Dosage: 150 MG
     Dates: end: 20111214
  3. INDOMETHACIN [Suspect]
     Indication: GOUT
     Dosage: 150 MG
     Route: 048
     Dates: start: 201112, end: 201112
  4. PREDNISONE [Suspect]
     Indication: GOUT
     Route: 048
     Dates: start: 201112, end: 201112
  5. ALLOPURINOL [Concomitant]
     Indication: GOUT
     Dosage: 100 MG
     Dates: start: 2010, end: 2012
  6. GABAPENTIN [Concomitant]
     Indication: PAIN
     Dosage: 200 MG
     Dates: start: 201104, end: 2012
  7. LASIX [Concomitant]
     Dosage: 80 MG
  8. LOPRESSOR [Concomitant]
     Dosage: 50 MG
  9. POTASSIUM CHLORIDE [Concomitant]
     Dosage: 20 MEQ
  10. ZOCOR [Concomitant]
     Indication: DYSLIPIDAEMIA
     Dosage: 20 MG
  11. TRAMADOL [Concomitant]
     Indication: PAIN
     Dates: start: 2011, end: 2012
  12. ASPIRIN [Concomitant]
     Indication: ATRIAL FIBRILLATION
     Dosage: 81 MG

REACTIONS (3)
  - Lower gastrointestinal haemorrhage [Unknown]
  - Rectal haemorrhage [Unknown]
  - Post procedural haemorrhage [Recovered/Resolved]
